FAERS Safety Report 13942436 (Version 2)
Quarter: 2017Q3

REPORT INFORMATION
  Report Type: Spontaneous
  Country: BR (occurrence: BR)
  Receive Date: 20170907
  Receipt Date: 20170908
  Transmission Date: 20171127
  Serious: Yes (Hospitalization, Other)
  Sender: FDA-Public Use
  Company Number: BR-ABBVIE-17P-020-2009818-00

PATIENT
  Age: 79 Year
  Sex: Female
  Weight: 68 kg

DRUGS (18)
  1. SERTRALINE HYDROCHLORIDE. [Concomitant]
     Active Substance: SERTRALINE HYDROCHLORIDE
     Indication: DEPRESSION
     Route: 048
     Dates: start: 2017
  2. DIGOXIN. [Concomitant]
     Active Substance: DIGOXIN
     Indication: HEART RATE INCREASED
     Route: 048
     Dates: start: 20160529
  3. TENAVIT (FOLIC ACID / PYRIDOXINE CHLORIDRATE / CYCOCOCBALAMINE) [Concomitant]
     Indication: COMPLEMENT FACTOR
     Route: 048
  4. SELOZOK [Concomitant]
     Active Substance: METOPROLOL SUCCINATE
     Indication: HEART RATE ABNORMAL
     Dosage: MORNING/NIGHT
     Route: 048
  5. ENALAPRIL MALEATE. [Concomitant]
     Active Substance: ENALAPRIL MALEATE
     Indication: BLOOD PRESSURE MEASUREMENT
     Route: 048
     Dates: start: 2013
  6. LABIRIN [Concomitant]
     Active Substance: BETAHISTINE
     Indication: LABYRINTHITIS
     Dosage: FORM STRENGTH 24 MG
     Route: 048
  7. DEPAKENE [Suspect]
     Active Substance: VALPROIC ACID
     Indication: SEIZURE
     Route: 048
     Dates: start: 20161229, end: 201707
  8. GLIFAGE XR (METFORMIN HYDROCHLORIDE) [Concomitant]
     Indication: DIABETES MELLITUS
     Dosage: 2 TABLETS
     Route: 048
     Dates: start: 20170529
  9. MANTIDAN (AMANTADINE HYDROCHLORIDE ) [Concomitant]
     Indication: PARKINSON^S DISEASE
     Route: 048
     Dates: start: 201610
  10. DONEPEZILA ( DONEPEZIL) [Concomitant]
     Indication: DEMENTIA ALZHEIMER^S TYPE
     Route: 048
     Dates: start: 2016
  11. HIDRION (FUROSEMIDE / POTASSIUM CHLORIDE) [Concomitant]
     Indication: DIURETIC THERAPY
     Route: 048
  12. RETEMIC [Concomitant]
     Active Substance: OXYBUTYNIN CHLORIDE
     Indication: BLADDER DISORDER
     Dosage: FORM STRENGTH: 5 MILIGRAM
     Route: 048
  13. DEPAKOTE ER [Suspect]
     Active Substance: DIVALPROEX SODIUM
     Indication: PRODUCT USED FOR UNKNOWN INDICATION
     Dosage: DAILY DOSE: 2 TABLET; THE TABLET IS SMASHED AND ADMINISTERED VIA CATHETER WITH A SYRINGE
     Route: 050
     Dates: start: 201707
  14. PISA (PRAMIPEXOLE DIHYDROCHLORIDE) [Concomitant]
     Indication: PARKINSON^S DISEASE
     Route: 048
     Dates: start: 2016
  15. PROLOPA DR (LEVODOPA / BENSERAZIDE HYDROCHLORIDE ) [Concomitant]
     Indication: PARKINSON^S DISEASE
     Dosage: 200 MG / 50 MG
     Route: 048
     Dates: start: 201702
  16. PIOGLITAZONE HYDROCHLORIDE. [Concomitant]
     Active Substance: PIOGLITAZONE HYDROCHLORIDE
     Indication: DIABETES MELLITUS
     Route: 048
  17. SELOZOK [Concomitant]
     Active Substance: METOPROLOL SUCCINATE
     Indication: BLOOD PRESSURE ABNORMAL
     Dosage: FORM STRENGTH: 25 MILIGRAM
     Dates: end: 20170605
  18. METFORMIN HYDROCHLORIDE. [Concomitant]
     Active Substance: METFORMIN HYDROCHLORIDE
     Indication: PRODUCT USED FOR UNKNOWN INDICATION
     Dosage: FORM STRENGTH: 850 MILIGRAM

REACTIONS (14)
  - Respiratory disorder [Unknown]
  - Heart rate increased [Unknown]
  - Dysphagia [Unknown]
  - Lung neoplasm malignant [Not Recovered/Not Resolved]
  - Wrong technique in product usage process [Unknown]
  - Drug ineffective [Unknown]
  - Malaise [Unknown]
  - Seizure [Recovered/Resolved]
  - Product quality issue [Unknown]
  - Anaemia [Unknown]
  - Blood pressure increased [Unknown]
  - Lung cancer metastatic [Not Recovered/Not Resolved]
  - Varicose vein [Not Recovered/Not Resolved]
  - Product use issue [Unknown]

NARRATIVE: CASE EVENT DATE: 2017
